FAERS Safety Report 7247434-8 (Version None)
Quarter: 2011Q1

REPORT INFORMATION
  Report Type: 
  Country: None (occurrence: None)
  Receive Date: 20110127
  Receipt Date: 20110125
  Transmission Date: 20110831
  Serious: Yes (Death, Other)
  Sender: FDA-Public Use
  Company Number: PHHY2011US01589

PATIENT
  Sex: Female

DRUGS (2)
  1. EXJADE [Suspect]
     Indication: LYMPHOPROLIFERATIVE DISORDER
     Dosage: 1250 MG, UNK
     Route: 048
     Dates: start: 20101130
  2. CHEMOTHERAPEUTICS NOS [Concomitant]

REACTIONS (4)
  - CEREBROVASCULAR ACCIDENT [None]
  - CEREBRAL HAEMORRHAGE [None]
  - NEOPLASM MALIGNANT [None]
  - THROMBOCYTOPENIA [None]
